FAERS Safety Report 7214855-9 (Version None)
Quarter: 2011Q1

REPORT INFORMATION
  Report Type: 
  Country: None (occurrence: None)
  Receive Date: 20110104
  Receipt Date: 20110104
  Transmission Date: 20110831
  Serious: Yes (Other)
  Sender: FDA-Public Use
  Company Number: None

PATIENT
  Age: 56 Year
  Sex: Female
  Weight: 69.8539 kg

DRUGS (3)
  1. LISINOPRIL [Suspect]
     Indication: HYPERTENSION
     Dosage: 30 MG ONCE DAILY PO
     Route: 048
     Dates: start: 20081115, end: 20100615
  2. LISINOPRIL [Suspect]
     Indication: HYPERTENSION
     Dosage: 20 MG ONCE DAILY PO
     Route: 048
     Dates: start: 20100616, end: 20101208
  3. LISINOPRIL [Suspect]
     Indication: HYPOTENSION
     Dosage: 20 MG ONCE DAILY PO
     Route: 048
     Dates: start: 20100616, end: 20101208

REACTIONS (4)
  - CONDITION AGGRAVATED [None]
  - BLOOD PRESSURE INCREASED [None]
  - VERTIGO [None]
  - TEMPOROMANDIBULAR JOINT SYNDROME [None]
